FAERS Safety Report 7260000-3 (Version None)
Quarter: 2011Q1

REPORT INFORMATION
  Report Type: 
  Country: None (occurrence: None)
  Receive Date: 20110130
  Receipt Date: 20101016
  Transmission Date: 20110831
  Serious: No
  Sender: FDA-Public Use
  Company Number: US-ABBOTT-10P-163-0679092-00

PATIENT
  Age: 12 Year
  Sex: Male

DRUGS (2)
  1. PENTASA [Concomitant]
     Indication: CROHN'S DISEASE
     Dosage: 2500 MG ONE TIME WEEKLY
  2. HUMIRA [Suspect]
     Indication: CROHN'S DISEASE
     Dates: start: 20100701

REACTIONS (3)
  - INJECTION SITE PAIN [None]
  - ABDOMINAL TENDERNESS [None]
  - CROHN'S DISEASE [None]
